FAERS Safety Report 6595499-9 (Version None)
Quarter: 2010Q1

REPORT INFORMATION
  Report Type: 
  Country: None (occurrence: None)
  Receive Date: 20100223
  Receipt Date: 20100209
  Transmission Date: 20100710
  Serious: Yes (Other)
  Sender: FDA-Public Use
  Company Number: HU-JNJFOC-20100206982

PATIENT

DRUGS (1)
  1. INFLIXIMAB [Suspect]
     Indication: CROHN'S DISEASE
     Dosage: 5MG/KG; INDUCTION THERAPY AT WEEK 0,2, AND 6.
     Route: 042

REACTIONS (1)
  - ANAPHYLACTIC REACTION [None]
